FAERS Safety Report 25889942 (Version 1)
Quarter: 2025Q4

REPORT INFORMATION
  Report Type: Spontaneous
  Country: US (occurrence: None)
  Receive Date: 20251006
  Receipt Date: 20251006
  Transmission Date: 20260117
  Serious: Yes (Hospitalization)
  Sender: FDA-CTU
  Company Number: None

PATIENT
  Age: 84 Year
  Sex: Female

DRUGS (1)
  1. TAGRISSO [Suspect]
     Active Substance: OSIMERTINIB
     Indication: Non-small cell lung cancer
     Dosage: OTHER QUANTITY : SEE ADDITIONAL COMMENTS ;?OTHER FREQUENCY : TK 1 T PO D;?
     Route: 048
     Dates: start: 20250412

REACTIONS (3)
  - Blood pressure increased [None]
  - Loss of consciousness [None]
  - Pneumonia [None]

NARRATIVE: CASE EVENT DATE: 20250926
